FAERS Safety Report 4280829-3 (Version None)
Quarter: 2004Q1

REPORT INFORMATION
  Report Type: 
  Country: None (occurrence: None)
  Receive Date: 20040127
  Receipt Date: 20031229
  Transmission Date: 20041129
  Serious: Yes (Death)
  Sender: FDA-Public Use
  Company Number: USA-2003-0012615

PATIENT
  Age: 82 Year
  Sex: Female

DRUGS (2)
  1. OXYCONTIN [Suspect]
     Indication: CANCER PAIN
     Dosage: 80 MG, Q12H, ORAL
     Route: 048
  2. LORTAB [Concomitant]

REACTIONS (2)
  - CONDITION AGGRAVATED [None]
  - VULVAL CANCER METASTATIC [None]
